FAERS Safety Report 8052897-4 (Version None)
Quarter: 2012Q1

REPORT INFORMATION
  Report Type: 
  Country: None (occurrence: None)
  Receive Date: 20120118
  Receipt Date: 20120109
  Transmission Date: 20120608
  Serious: Yes (Hospitalization, Other)
  Sender: FDA-Public Use
  Company Number: US-BAYER-2011-038369

PATIENT
  Age: 19 Year
  Sex: Female
  Weight: 73 kg

DRUGS (4)
  1. YAZ [Suspect]
     Indication: PREMENSTRUAL SYNDROME
  2. AMOXICILLIN AND CLAVULANATE POTASSIUM [Concomitant]
     Dosage: UNK (875-125 MG)
     Dates: start: 20080901
  3. YAZ [Suspect]
     Indication: CONTRACEPTION
     Dosage: UNK
     Dates: start: 20031201, end: 20090701
  4. YAZ [Suspect]
     Indication: ACNE

REACTIONS (9)
  - CHOLELITHIASIS [None]
  - DEEP VEIN THROMBOSIS [None]
  - ANXIETY [None]
  - ANHEDONIA [None]
  - QUALITY OF LIFE DECREASED [None]
  - INJURY [None]
  - CHOLECYSTITIS CHRONIC [None]
  - FEAR [None]
  - PAIN [None]
